FAERS Safety Report 6069487-5 (Version None)
Quarter: 2009Q1

REPORT INFORMATION
  Report Type: 
  Country: None (occurrence: None)
  Receive Date: 20090206
  Receipt Date: 20090129
  Transmission Date: 20090719
  Serious: Yes (Other)
  Sender: FDA-Public Use
  Company Number: CA-BAXTER-2009BH001183

PATIENT
  Age: 34 Year
  Sex: Female

DRUGS (7)
  1. IMMUNE GLOBULIN INTRAVENOUS (HUMAN) [Suspect]
     Indication: IMMUNODEFICIENCY COMMON VARIABLE
     Route: 042
     Dates: start: 19950101
  2. IMMUNE GLOBULIN INTRAVENOUS (HUMAN) [Suspect]
     Route: 042
     Dates: start: 20050101
  3. IMMUNE GLOBULIN INTRAVENOUS (HUMAN) [Suspect]
     Route: 042
     Dates: start: 20070101
  4. IMMUNE GLOBULIN INTRAVENOUS (HUMAN) [Suspect]
     Route: 058
  5. IMMUNE GLOBULIN INTRAVENOUS (HUMAN) [Suspect]
     Route: 058
  6. HYDROCORTISONE [Concomitant]
     Indication: PREMEDICATION
     Dates: start: 20050101
  7. ACETAMINOPHEN [Concomitant]
     Indication: PREMEDICATION
     Route: 065
     Dates: start: 20050101

REACTIONS (1)
  - ANAPHYLACTIC REACTION [None]
